FAERS Safety Report 6062349-9 (Version None)
Quarter: 2009Q1

REPORT INFORMATION
  Report Type: 
  Country: None (occurrence: None)
  Receive Date: 20090203
  Receipt Date: 20090121
  Transmission Date: 20090719
  Serious: Yes (Death)
  Sender: FDA-Public Use
  Company Number: US-JNJFOC-20090106677

PATIENT
  Sex: Female
  Weight: 88 kg

DRUGS (10)
  1. FENTANYL-75 [Suspect]
     Indication: DRUG USE FOR UNKNOWN INDICATION
     Route: 065
  2. BENADRYL [Suspect]
     Route: 065
  3. BENADRYL [Suspect]
     Indication: DRUG USE FOR UNKNOWN INDICATION
     Route: 065
  4. SOMINEX [Suspect]
     Indication: DRUG USE FOR UNKNOWN INDICATION
     Route: 065
  5. METHADONE HCL [Suspect]
     Indication: DRUG USE FOR UNKNOWN INDICATION
     Route: 065
  6. TYLENOL [Concomitant]
  7. SODIUM [Concomitant]
  8. POTASSIUM CHLORIDE [Concomitant]
  9. DEXTROSE 5% [Concomitant]
  10. CREATININE [Concomitant]

REACTIONS (1)
  - DRUG TOXICITY [None]
